FAERS Safety Report 4937353-1 (Version None)
Quarter: 2006Q1

REPORT INFORMATION
  Report Type: 
  Country: None (occurrence: None)
  Receive Date: 20060309
  Receipt Date: 20060301
  Transmission Date: 20060701
  Serious: Yes (Hospitalization)
  Sender: FDA-Public Use
  Company Number: ES-BOEHRINGER INGELHEIM PHARMACEUTICALS, INC.-2006-DE-01165GD

PATIENT

DRUGS (6)
  1. DIPYRIDAMOLE [Suspect]
     Dosage: {/= AND } 100 MG
  2. ASPIRIN [Suspect]
     Dosage: {/= 100 MG - } 200 MG
  3. PROTON PUMP INHIBITORS [Concomitant]
  4. H2-BLOCKING AGENTS [Concomitant]
  5. ANTACID TAB [Concomitant]
  6. MISOPROSTOL [Concomitant]

REACTIONS (1)
  - GASTROINTESTINAL HAEMORRHAGE [None]
